FAERS Safety Report 9873983 (Version 2)
Quarter: 2014Q1

REPORT INFORMATION
  Report Type: Spontaneous
  Country: US (occurrence: US)
  Receive Date: 20140206
  Receipt Date: 20140206
  Transmission Date: 20141002
  Serious: No
  Sender: FDA-Public Use
  Company Number: US-ACORDA-ACO_33643_2013

PATIENT
  Sex: Female
  Weight: 56.69 kg

DRUGS (5)
  1. AMPYRA [Suspect]
     Indication: GAIT DISTURBANCE
     Dosage: 10 MG, Q 12 HRS
     Route: 048
     Dates: start: 20121019
  2. AMPYRA [Suspect]
     Dosage: UNK
  3. METHOTREXATE SODIUM [Suspect]
     Indication: PRODUCT USED FOR UNKNOWN INDICATION
     Dosage: 7.5 MG, WEEKLY
     Route: 048
     Dates: start: 201203
  4. XANAX [Concomitant]
     Indication: ANXIETY
     Dosage: 0.5 DF, QD AT BEDTIME
     Route: 048
  5. XANAX [Concomitant]
     Indication: INSOMNIA

REACTIONS (5)
  - Burning sensation [Unknown]
  - Feeling abnormal [Unknown]
  - Paraesthesia [Unknown]
  - Back pain [Unknown]
  - Drug effect decreased [Recovering/Resolving]
